FAERS Safety Report 9768975 (Version 1)
Quarter: 2013Q4

REPORT INFORMATION
  Report Type: Report from Study
  Country: US (occurrence: US)
  Receive Date: 20131218
  Receipt Date: 20131218
  Transmission Date: 20140711
  Serious: Yes (Hospitalization)
  Sender: FDA-Public Use
  Company Number: US-ROCHE-1310203

PATIENT
  Age: 56 Year
  Sex: Male
  Weight: 51.8 kg

DRUGS (13)
  1. AVASTIN [Suspect]
     Indication: LUNG NEOPLASM MALIGNANT
     Route: 042
     Dates: start: 20130128
  2. EMEND [Concomitant]
     Route: 042
  3. CARBOPLATIN [Concomitant]
     Route: 042
  4. ALOXI [Concomitant]
     Route: 042
  5. BENADRYL (UNITED STATES) [Concomitant]
     Route: 042
  6. DECADRON [Concomitant]
     Route: 042
  7. FAMOTIDINE [Concomitant]
     Route: 042
  8. RELISTOR [Concomitant]
     Route: 058
  9. XGEVA [Concomitant]
     Route: 058
  10. OXYCODONE [Concomitant]
     Indication: PAIN
     Route: 048
  11. MS [Concomitant]
     Indication: PAIN
     Dosage: BID
     Route: 065
  12. NEULASTA [Concomitant]
     Route: 065
  13. TAXOL [Concomitant]
     Route: 042

REACTIONS (15)
  - Sedation [Unknown]
  - Disorientation [Unknown]
  - Fall [Unknown]
  - Respiratory rate decreased [Unknown]
  - Fatigue [Unknown]
  - Constipation [Unknown]
  - Decreased appetite [Unknown]
  - Insomnia [Unknown]
  - Speech disorder [Unknown]
  - Asthenia [Unknown]
  - Oedema peripheral [Unknown]
  - Decubitus ulcer [Recovering/Resolving]
  - Arthralgia [Unknown]
  - Dizziness [Recovered/Resolved]
  - Abdominal discomfort [Unknown]
